FAERS Safety Report 21733309 (Version 2)
Quarter: 2022Q4

REPORT INFORMATION
  Report Type: Report from Study
  Country: PL (occurrence: None)
  Receive Date: 20221215
  Receipt Date: 20221220
  Transmission Date: 20230113
  Serious: Yes (Hospitalization)
  Sender: FDA-Public Use
  Company Number: PL-Eisai Medical Research-EC-2022-118294

PATIENT
  Age: 65 Year
  Sex: Male
  Weight: 76 kg

DRUGS (21)
  1. LENVATINIB [Suspect]
     Active Substance: LENVATINIB
     Indication: Clear cell renal cell carcinoma
     Dosage: STARTING DOSE: 20 MILLIGRAM, FLUCTUATED DOSAGE
     Route: 048
     Dates: start: 20220324, end: 20220626
  2. LENVATINIB [Suspect]
     Active Substance: LENVATINIB
     Dosage: STARTING DOSE: 10 MILLIGRAM, FLUCTUATED DOSAGE
     Route: 048
     Dates: start: 20220715
  3. QUAVONLIMAB [Suspect]
     Active Substance: QUAVONLIMAB
     Indication: Clear cell renal cell carcinoma
     Dosage: QUAVONLIMAB 25 MG (+) PEMBROLIZUMAB 400 MG
     Route: 041
     Dates: start: 20220324, end: 20220622
  4. QUAVONLIMAB [Suspect]
     Active Substance: QUAVONLIMAB
     Dosage: QUAVONLIMAB 25 MG (+) PEMBROLIZUMAB 400 MG
     Route: 041
     Dates: start: 20220728
  5. POTASSIUM CHLORIDE [Concomitant]
     Active Substance: POTASSIUM CHLORIDE
     Dates: start: 200201
  6. AMLODIPINE BESYLATE\PERINDOPRIL ARGININE [Concomitant]
     Active Substance: AMLODIPINE BESYLATE\PERINDOPRIL ARGININE
     Dates: start: 200201, end: 20220628
  7. BISOPROLOL [Concomitant]
     Active Substance: BISOPROLOL
     Dates: start: 202001
  8. PROPAFENONE HYDROCHLORIDE [Concomitant]
     Active Substance: PROPAFENONE HYDROCHLORIDE
     Dates: start: 202001, end: 20220703
  9. MAGNE B6 [Concomitant]
     Active Substance: MAGNESIUM\PYRIDOXINE
     Dates: start: 202001
  10. FENOTEROL HYDROBROMIDE [Concomitant]
     Active Substance: FENOTEROL HYDROBROMIDE
     Dates: start: 200701
  11. SINGULAIR [Concomitant]
     Active Substance: MONTELUKAST SODIUM
     Dates: start: 200701
  12. FLUTICASONE PROPIONATE\SALMETEROL XINAFOATE [Concomitant]
     Active Substance: FLUTICASONE PROPIONATE\SALMETEROL XINAFOATE
     Dates: start: 200701
  13. ADATAM [Concomitant]
     Dates: start: 20220424
  14. CAPTOPRIL [Concomitant]
     Active Substance: CAPTOPRIL
     Dates: start: 202206
  15. ESSELIV [Concomitant]
     Dates: start: 20220414
  16. SODIUM CHLORIDE [Concomitant]
     Active Substance: SODIUM CHLORIDE
     Dates: start: 20220613, end: 20220613
  17. PANCRELIPASE [Concomitant]
     Active Substance: PANCRELIPASE
     Dates: start: 20220607
  18. ELIQUIS [Concomitant]
     Active Substance: APIXABAN
     Dates: start: 202001, end: 20220623
  19. ALLOPURINOL [Concomitant]
     Active Substance: ALLOPURINOL
     Dates: start: 201801
  20. PEMBROLIZUMAB [Suspect]
     Active Substance: PEMBROLIZUMAB
  21. PEMBROLIZUMAB [Suspect]
     Active Substance: PEMBROLIZUMAB

REACTIONS (1)
  - Gastric ulcer [Not Recovered/Not Resolved]

NARRATIVE: CASE EVENT DATE: 20220622
